FAERS Safety Report 7946859-2 (Version None)
Quarter: 2011Q4

REPORT INFORMATION
  Report Type: 
  Country: None (occurrence: None)
  Receive Date: 20111129
  Receipt Date: 20111123
  Transmission Date: 20120403
  Serious: Yes (Hospitalization)
  Sender: FDA-Public Use
  Company Number: PHHO2011FR019214

PATIENT
  Sex: Female
  Weight: 17.3 kg

DRUGS (4)
  1. INDOMETHACIN [Concomitant]
     Indication: JUVENILE ARTHRITIS
     Dosage: UNK
     Dates: start: 20100714, end: 20111114
  2. ILARIS [Suspect]
     Indication: JUVENILE ARTHRITIS
     Dosage: 4 MG/KG, ONCE EVERY 4 WEEKS
     Dates: start: 20101116, end: 20111018
  3. PREDNISOLONE [Concomitant]
     Indication: JUVENILE ARTHRITIS
     Dosage: 2 MG, BID
     Route: 048
     Dates: start: 20110822, end: 20111115
  4. ILARIS [Suspect]
     Dosage: 4 MG/KG, ONCE EVERY 4 WEEKS
     Dates: start: 20111121

REACTIONS (2)
  - JUVENILE ARTHRITIS [None]
  - GASTROENTERITIS [None]
